FAERS Safety Report 13397487 (Version 4)
Quarter: 2017Q2

REPORT INFORMATION
  Report Type: Spontaneous
  Country: US (occurrence: US)
  Receive Date: 20170403
  Receipt Date: 20170523
  Transmission Date: 20170830
  Serious: No
  Sender: FDA-Public Use
  Company Number: US-B.I. PHARMACEUTICALS,INC./RIDGEFIELD-2017-BI-018260

PATIENT
  Sex: Male

DRUGS (12)
  1. CARVEDILOL. [Concomitant]
     Active Substance: CARVEDILOL
     Indication: CARDIAC OPERATION
     Dosage: 1 TAB BID;  FORM STRENGTH: 6.25MG; FORMULATION: TABLET
     Route: 048
  2. HYDORCHOLROTHIAZIDE [Concomitant]
     Indication: HYPERTENSION
     Dosage: 1 TAB DAILY;  FORM STRENGTH: 12.5MG; FORMULATION: TABLET
     Route: 048
  3. ELIQUIS [Concomitant]
     Active Substance: APIXABAN
     Indication: CARDIAC OPERATION
     Dosage: 1 TAB BID;  FORM STRENGTH: 5MG; FORMULATION: TABLET
     Route: 048
  4. SPIRIVA [Suspect]
     Active Substance: TIOTROPIUM BROMIDE MONOHYDRATE
     Indication: CHRONIC OBSTRUCTIVE PULMONARY DISEASE
     Dosage: 1 CAP DAILY;  FORM STRENGTH: 18 MCG; FORMULATION: CAPSULE? ADMINISTRATION CORRECT? YES ?ACTION(S) TA
     Dates: start: 2013
  5. METFORMIN [Concomitant]
     Active Substance: METFORMIN HYDROCHLORIDE
     Indication: DIABETES MELLITUS
     Dosage: 1 CAP PER DAY;  FORM STRENGTH: 1000MG; FORMULATION: CAPSULE
     Route: 048
  6. JANUVIA [Concomitant]
     Active Substance: SITAGLIPTIN PHOSPHATE
     Indication: DIABETES MELLITUS
     Dosage: 1 TAB DAILY;  FORM STRENGTH: 100MG; FORMULATION: TABLET
     Route: 048
  7. ASPIRIN. [Concomitant]
     Active Substance: ASPIRIN
     Indication: CARDIAC DISORDER
     Dosage: 1 TAB DAILY;  FORM STRENGTH: 81 MG; FORMULATION: TABLET
     Route: 048
  8. ATORVASTAIN [Concomitant]
     Active Substance: ATORVASTATIN
     Indication: BLOOD CHOLESTEROL INCREASED
     Dosage: 1 TAB DAILY;  FORM STRENGTH: 80MG; FORMULATION: TABLET
     Route: 048
  9. AMLODIPINE BESYLATE. [Concomitant]
     Active Substance: AMLODIPINE BESYLATE
     Indication: CARDIAC OPERATION
     Dosage: 1 TAB DAILY;  FORM STRENGTH: 10MG; FORMULATION: TABLET
     Route: 048
  10. PLAVIX [Concomitant]
     Active Substance: CLOPIDOGREL BISULFATE
     Indication: CARDIAC OPERATION
     Dosage: 1 TAB DAILY;  FORM STRENGTH: 75MG; FORMULATION: TABLET
     Route: 048
  11. LISINOPRIL. [Concomitant]
     Active Substance: LISINOPRIL
     Indication: PRODUCT USED FOR UNKNOWN INDICATION
     Dosage: 1 TAB DAILY;  FORM STRENGTH: 10MG; FORMULATION: TABLET
     Route: 048
  12. LANTUS [Concomitant]
     Active Substance: INSULIN GLARGINE
     Indication: DIABETES MELLITUS
     Dosage: 1 INJECTION DAILY;  FORM STRENGTH: 26 UNITS; FORMULATION: SUBCUTANEOUS
     Route: 058

REACTIONS (3)
  - Drug ineffective [Unknown]
  - Product quality issue [Unknown]
  - Drug effect incomplete [Not Recovered/Not Resolved]

NARRATIVE: CASE EVENT DATE: 2016
